FAERS Safety Report 10473734 (Version 1)
Quarter: 2014Q3

REPORT INFORMATION
  Report Type: Spontaneous
  Country: GR (occurrence: None)
  Receive Date: 20140922
  Receipt Date: 20140922
  Transmission Date: 20150326
  Serious: Yes (Other)
  Sender: FDA-Public Use
  Company Number: COR_00067_2014

PATIENT
  Age: 22 Year
  Sex: Male

DRUGS (3)
  1. CARBOPLATIN. [Suspect]
     Active Substance: CARBOPLATIN
     Indication: GERM CELL CANCER
     Dosage: (AUC = 6/DAY ON DAYS -6, -5, -4, -3)
  2. CYCLOPHOSPHAMIDE. [Suspect]
     Active Substance: CYCLOPHOSPHAMIDE
     Indication: GERM CELL CANCER
     Dosage: (1.5 G/M2/DAY)
  3. ETOPOSIDE. [Suspect]
     Active Substance: ETOPOSIDE
     Indication: GERM CELL CANCER
     Dosage: (400 MG/M2/DAY,  ON DAYS  -6, -5, -4, -3)

REACTIONS (3)
  - Mucosal inflammation [None]
  - Febrile neutropenia [None]
  - Cystitis haemorrhagic [None]
